FAERS Safety Report 9870335 (Version 2)
Quarter: 2014Q1

REPORT INFORMATION
  Report Type: Report from Study
  Country: CY (occurrence: CY)
  Receive Date: 20140205
  Receipt Date: 20140213
  Transmission Date: 20141002
  Serious: Yes (Hospitalization)
  Sender: FDA-Public Use
  Company Number: PHHY2014CY013175

PATIENT
  Age: 64 Year
  Sex: Female

DRUGS (3)
  1. ZOLEDRONATE [Suspect]
     Indication: BONE DISORDER
     Dosage: 4 MG, UNK
     Route: 042
     Dates: start: 20110607
  2. ZOLEDRONATE [Suspect]
     Dosage: 4 MG, UNK
     Route: 042
     Dates: start: 20130910
  3. BISPHOSPHONATES [Concomitant]
     Indication: BONE DISORDER

REACTIONS (6)
  - Osteonecrosis of jaw [Recovering/Resolving]
  - Tooth infection [Recovering/Resolving]
  - Pain [Recovering/Resolving]
  - Aphagia [Recovering/Resolving]
  - Exposed bone in jaw [Recovering/Resolving]
  - Bone lesion [Recovering/Resolving]
